FAERS Safety Report 5913361-9 (Version None)
Quarter: 2008Q4

REPORT INFORMATION
  Report Type: 
  Country: None (occurrence: None)
  Receive Date: 20081009
  Receipt Date: 20080930
  Transmission Date: 20090506
  Serious: Yes (Other)
  Sender: FDA-Public Use
  Company Number: PHEH2008US08792

PATIENT
  Sex: Female

DRUGS (2)
  1. DIOVAN HCT [Suspect]
     Dosage: ?? VAL / 12.5 MG
     Route: 048
     Dates: start: 20060801
  2. HYDROCHLOROTHIAZIDE [Suspect]
     Dosage: 12.5 MG, QD
     Route: 048

REACTIONS (3)
  - ORAL DISORDER [None]
  - ORAL LICHEN PLANUS [None]
  - PEMPHIGUS [None]
